FAERS Safety Report 12166074 (Version 1)
Quarter: 2016Q1

REPORT INFORMATION
  Report Type: Other
  Country: DK (occurrence: DK)
  Receive Date: 20160309
  Receipt Date: 20160309
  Transmission Date: 20160526
  Serious: Yes (Death, Other)
  Sender: FDA-Public Use
  Company Number: DK-DEP_13803_2016

PATIENT
  Age: 5 Year
  Sex: Male

DRUGS (12)
  1. PREDNISOLONE. [Concomitant]
     Active Substance: PREDNISOLONE
     Dosage: DF
  2. MEROPENEM. [Concomitant]
     Active Substance: MEROPENEM
     Indication: PNEUMONIA ASPIRATION
     Dosage: DF
     Route: 042
  3. MIDAZOLAM [Suspect]
     Active Substance: MIDAZOLAM\MIDAZOLAM HYDROCHLORIDE
     Indication: PRODUCT USED FOR UNKNOWN INDICATION
     Dosage: UNK
  4. CEFUROXIME. [Concomitant]
     Active Substance: CEFUROXIME
     Indication: PNEUMONIA ASPIRATION
     Dosage: DF
     Route: 042
  5. PROPOFOL (PROPOFOL) [Suspect]
     Active Substance: PROPOFOL
     Indication: SEDATION
     Dosage: UNK
  6. GLYCOPYRRONIUM BROMIDE (GLYCOPYRRONIUM BROMIDE) [Suspect]
     Active Substance: GLYCOPYRRONIUM
     Indication: SALIVARY HYPERSECRETION
  7. GLUCOSE [Concomitant]
     Active Substance: DEXTROSE
     Dosage: DF
  8. CIPROFLOXACIN. [Concomitant]
     Active Substance: CIPROFLOXACIN
     Indication: PNEUMONIA ASPIRATION
     Dosage: DF
     Route: 042
  9. MIDAZOLAM [Suspect]
     Active Substance: MIDAZOLAM\MIDAZOLAM HYDROCHLORIDE
     Indication: SEDATION
  10. FUROSEMIDE. [Concomitant]
     Active Substance: FUROSEMIDE
     Dosage: DF
  11. METRONIDAZOLE. [Concomitant]
     Active Substance: METRONIDAZOLE
     Indication: PNEUMONIA ASPIRATION
     Dosage: DF
     Route: 042
  12. FENTANYL (FENTANYL) [Suspect]
     Active Substance: FENTANYL
     Indication: SEDATION
     Dosage: UNK

REACTIONS (5)
  - Product use issue [Fatal]
  - Drug administered to patient of inappropriate age [Fatal]
  - Acute respiratory distress syndrome [Fatal]
  - Anticholinergic syndrome [Recovered/Resolved]
  - Aspiration [Fatal]
